FAERS Safety Report 21319955 (Version 1)
Quarter: 2022Q3

REPORT INFORMATION
  Report Type: Spontaneous
  Country: US (occurrence: US)
  Receive Date: 20220911
  Receipt Date: 20220911
  Transmission Date: 20221027
  Serious: No
  Sender: FDA-Public Use
  Company Number: US-SA-SAC20220906000408

PATIENT

DRUGS (1)
  1. NASACORT [Suspect]
     Active Substance: TRIAMCINOLONE ACETONIDE
     Indication: Rhinitis perennial
     Dosage: 220 UG, QD

REACTIONS (3)
  - Tenderness [Unknown]
  - Toothache [Unknown]
  - Mastication disorder [Unknown]
